FAERS Safety Report 6228428-8 (Version None)
Quarter: 2009Q2

REPORT INFORMATION
  Report Type: 
  Country: None (occurrence: None)
  Receive Date: 20090612
  Receipt Date: 20090603
  Transmission Date: 20091009
  Serious: Yes (Hospitalization, Other)
  Sender: FDA-Public Use
  Company Number: US-ELI_LILLY_AND_COMPANY-US200906000890

PATIENT
  Sex: Male

DRUGS (4)
  1. FORTEO [Suspect]
     Dates: start: 20081201
  2. METOPROLOL SUCCINATE [Concomitant]
     Indication: HYPERTENSION
     Dosage: 25 MG, 2/D
  3. ASPIRIN [Concomitant]
     Dosage: 325 MG, DAILY (1/D)
  4. SIMVASTATIN [Concomitant]
     Dosage: 20 MG, DAILY (1/D)

REACTIONS (5)
  - BLOOD IRON DECREASED [None]
  - CONSTIPATION [None]
  - HIP SURGERY [None]
  - MUSCLE SPASMS [None]
  - PAIN [None]
